FAERS Safety Report 9190444 (Version 2)
Quarter: 2012Q4

REPORT INFORMATION
  Report Type: 
  Country: US (occurrence: US)
  Receive Date: 20121220
  Receipt Date: 20121231
  Transmission Date: 20130627
  Serious: Yes (Other)
  Sender: FDA-Public Use
  Company Number: US-RB-047840-12

PATIENT
  Age: 55 Year
  Sex: Female

DRUGS (2)
  1. MUCINEX FULL FORCE [Suspect]
     Indication: PRODUCT USED FOR UNKNOWN INDICATION
     Dosage: On 16-DEC-2012,3 shots per nostril and 1 shot per nostril and 17-DEC-2012, 2 sprays per nostril.
     Route: 045
     Dates: start: 20121216
  2. TUSSIONEX [Concomitant]
     Indication: PRODUCT USED FOR UNKNOWN INDICATION
     Dosage: Patient did not take product on 17-DEC-2012.
     Dates: start: 20121216

REACTIONS (5)
  - Throat tightness [Not Recovered/Not Resolved]
  - Cold sweat [Not Recovered/Not Resolved]
  - Tremor [Not Recovered/Not Resolved]
  - Dysphagia [Not Recovered/Not Resolved]
  - Feeling cold [Not Recovered/Not Resolved]
